FAERS Safety Report 25880949 (Version 2)
Quarter: 2025Q4

REPORT INFORMATION
  Report Type: Report from Study
  Country: US (occurrence: US)
  Receive Date: 20251004
  Receipt Date: 20251014
  Transmission Date: 20260118
  Serious: Yes (Other)
  Sender: ABBVIE
  Company Number: US-ABBVIE-6486814

PATIENT
  Sex: Female

DRUGS (3)
  1. LINZESS [Suspect]
     Active Substance: LINACLOTIDE
     Indication: Irritable bowel syndrome
     Dosage: 145 MICROGRAM?OVER 10 YEARS AGO
     Route: 048
     Dates: end: 2024
  2. LINZESS [Suspect]
     Active Substance: LINACLOTIDE
     Indication: Irritable bowel syndrome
     Dosage: 72 MICROGRAM
     Route: 048
     Dates: start: 2024, end: 202509
  3. LINZESS [Suspect]
     Active Substance: LINACLOTIDE
     Indication: Irritable bowel syndrome
     Dosage: 145 MICROGRAM
     Route: 048
     Dates: start: 202509

REACTIONS (22)
  - Incarcerated hernia [Recovering/Resolving]
  - Hernia [Recovered/Resolved]
  - Abdominal pain [Recovering/Resolving]
  - Irritable bowel syndrome [Recovering/Resolving]
  - Gastrointestinal inflammation [Unknown]
  - Erythema [Unknown]
  - Constipation [Recovering/Resolving]
  - Constipation [Recovered/Resolved]
  - Faecaloma [Recovering/Resolving]
  - Body temperature increased [Unknown]
  - Rectal tenesmus [Recovering/Resolving]
  - Abdominal abscess [Unknown]
  - Hernia [Recovered/Resolved]
  - Abdominal pain [Recovered/Resolved]
  - Hernia [Recovering/Resolving]
  - Drug ineffective [Not Recovered/Not Resolved]
  - Abdominal pain [Recovered/Resolved]
  - Gait inability [Unknown]
  - Diarrhoea [Recovered/Resolved]
  - Mobility decreased [Not Recovered/Not Resolved]
  - Muscular weakness [Not Recovered/Not Resolved]
  - Dysstasia [Unknown]

NARRATIVE: CASE EVENT DATE: 20150101
